FAERS Safety Report 4592907-X (Version None)
Quarter: 2005Q1

REPORT INFORMATION
  Report Type: 
  Country: None (occurrence: None)
  Receive Date: 20050125
  Receipt Date: 20040823
  Transmission Date: 20050727
  Serious: No
  Sender: FDA-Public Use
  Company Number: USA040876288

PATIENT
  Age: 57 Year
  Sex: Male

DRUGS (1)
  1. FORTEO [Suspect]
     Dates: start: 20040101

REACTIONS (4)
  - ABNORMAL BEHAVIOUR [None]
  - DEPRESSION [None]
  - GAIT DISTURBANCE [None]
  - SOMNOLENCE [None]
